FAERS Safety Report 4785316-1 (Version None)
Quarter: 2005Q3

REPORT INFORMATION
  Report Type: 
  Country: None (occurrence: None)
  Receive Date: 20050914
  Receipt Date: 20050706
  Transmission Date: 20060218
  Serious: Yes (Other)
  Sender: FDA-Public Use
  Company Number: 163-20785-05070066 (0)

PATIENT
  Sex: Male

DRUGS (2)
  1. THALIDOMIDE OR PLACEBO (THALIDOMIDE) (CAPSULES) [Suspect]
     Indication: PROSTATIC INTRAEPITHELIAL NEOPLASIA
     Dosage: 200MG OR PLACEBO, DAILY, ORAL
     Route: 048
  2. (L) LEUPROLIDE OR (G) (GOSERELIN [Suspect]
     Indication: PROSTATIC INTRAEPITHELIAL NEOPLASIA
     Dosage: SEE IMAGE

REACTIONS (1)
  - ARRHYTHMIA SUPRAVENTRICULAR [None]
